APPROVED DRUG PRODUCT: AMIODARONE HYDROCHLORIDE
Active Ingredient: AMIODARONE HYDROCHLORIDE
Strength: 200MG
Dosage Form/Route: TABLET;ORAL
Application: A075389 | Product #001 | TE Code: AB
Applicant: DR REDDYS LABORATORIES SA
Approved: Jan 25, 2001 | RLD: No | RS: No | Type: RX